FAERS Safety Report 6245531-7 (Version None)
Quarter: 2009Q2

REPORT INFORMATION
  Report Type: 
  Country: None (occurrence: None)
  Receive Date: 20090625
  Receipt Date: 20090623
  Transmission Date: 20091009
  Serious: Yes (Death)
  Sender: FDA-Public Use
  Company Number: JP-B.I. PHARMACEUTICALS,INC./RIDGEFIELD-2009-BP-07111NB

PATIENT

DRUGS (6)
  1. SPIRIVA [Suspect]
     Route: 055
  2. DIOVAN [Concomitant]
     Dosage: 80 MG
     Route: 048
  3. BASEN [Concomitant]
     Dosage: 0.2 MG
     Route: 048
  4. MEVARICH [Concomitant]
     Dosage: 5 MG
     Route: 048
  5. SELECTOL [Concomitant]
     Dosage: 100 MG
     Route: 048
  6. NITROPEN [Concomitant]
     Dosage: 0.3 MG
     Route: 048

REACTIONS (2)
  - PNEUMONIA [None]
  - TREMOR [None]
